FAERS Safety Report 23444867 (Version 3)
Quarter: 2024Q1

REPORT INFORMATION
  Report Type: Spontaneous
  Country: US (occurrence: US)
  Receive Date: 20240125
  Receipt Date: 20240317
  Transmission Date: 20240410
  Serious: Yes (Other)
  Sender: FDA-Public Use
  Company Number: US-BRISTOL-MYERS SQUIBB COMPANY-2024-012530

PATIENT
  Age: 74 Year
  Sex: Female

DRUGS (1)
  1. POMALYST [Suspect]
     Active Substance: POMALIDOMIDE
     Indication: Plasma cell myeloma
     Dosage: FREQUENCY: TAKE 1 CAPSULE BY MOUTH WITH FOOD EVERY DAY FOR 14 DAYS, THEN 7 DAYS OFF. 16 CYCLES
     Route: 048
     Dates: start: 20231230

REACTIONS (4)
  - Upper respiratory tract infection [Recovered/Resolved]
  - Off label use [Unknown]
  - Plasma cell myeloma [Unknown]
  - Clostridium difficile colitis [Unknown]
